FAERS Safety Report 10456651 (Version 2)
Quarter: 2014Q4

REPORT INFORMATION
  Report Type: Spontaneous
  Country: DE (occurrence: None)
  Receive Date: 20140911
  Receipt Date: 20141107
  Transmission Date: 20150528
  Serious: Yes (Other)
  Sender: FDA-Public Use
  Company Number: 2014-19353

PATIENT
  Age: 87 Year
  Sex: Male

DRUGS (1)
  1. EYLEA [Suspect]
     Active Substance: AFLIBERCEPT
     Indication: NEOVASCULAR AGE-RELATED MACULAR DEGENERATION
     Dosage: 2 MG MILLIGRAM(S), UNK, INTRAOCULAR?
     Route: 031
     Dates: start: 20140318, end: 20140318

REACTIONS (4)
  - Vitritis [None]
  - Retinal haemorrhage [None]
  - Anterior chamber inflammation [None]
  - Anterior chamber cell [None]

NARRATIVE: CASE EVENT DATE: 20140321
